FAERS Safety Report 6714088-6 (Version None)
Quarter: 2010Q2

REPORT INFORMATION
  Report Type: 
  Country: None (occurrence: None)
  Receive Date: 20100506
  Receipt Date: 20100406
  Transmission Date: 20101027
  Serious: Yes (Other)
  Sender: FDA-Public Use
  Company Number: DE-ABBOTT-10P-062-0642559-00

PATIENT
  Age: 54 Year
  Sex: Female

DRUGS (3)
  1. EPROSARTAN PLUS HYDROCHLOROTHIAZIDE [Suspect]
     Indication: HYPERTENSION
     Dosage: 600 MG/12.5 MG FILMTABLETTEN
     Route: 048
  2. BISOPROLOL [Concomitant]
     Indication: DRUG USE FOR UNKNOWN INDICATION
  3. SPASMEX [Concomitant]
     Indication: DRUG USE FOR UNKNOWN INDICATION

REACTIONS (2)
  - EPISTAXIS [None]
  - MYOCARDIAL INFARCTION [None]
